FAERS Safety Report 6596205-4 (Version None)
Quarter: 2010Q1

REPORT INFORMATION
  Report Type: 
  Country: None (occurrence: None)
  Receive Date: 20100219
  Receipt Date: 20100219
  Transmission Date: 20100710
  Serious: Yes (Hospitalization)
  Sender: FDA-Public Use
  Company Number: None

PATIENT
  Sex: Male
  Weight: 119.8 kg

DRUGS (6)
  1. FLUOROURACIL [Suspect]
     Dosage: 12600 MG
     Dates: end: 20100201
  2. BEVACIZUMAB (RHUMAB VEGF) [Suspect]
     Dosage: 1200 MG
     Dates: end: 20100201
  3. LEUCOVORIN CALCIUM [Suspect]
     Dosage: 2000 MG
     Dates: end: 20100201
  4. ELOXATIN [Suspect]
     Dosage: 400 MG
     Dates: end: 20100201
  5. METOPROLOL TARTRATE [Concomitant]
  6. NSAIDS [Concomitant]

REACTIONS (9)
  - ARTHRALGIA [None]
  - ATRIAL FIBRILLATION [None]
  - DEHYDRATION [None]
  - DRUG DOSE OMISSION [None]
  - HEART RATE INCREASED [None]
  - HYPOPHAGIA [None]
  - ORAL HERPES [None]
  - STAPHYLOCOCCAL SEPSIS [None]
  - URINARY RETENTION [None]
